FAERS Safety Report 11252882 (Version 4)
Quarter: 2016Q2

REPORT INFORMATION
  Report Type: Report from Study
  Country: US (occurrence: US)
  Receive Date: 20150708
  Receipt Date: 20160621
  Transmission Date: 20160815
  Serious: Yes (Hospitalization)
  Sender: FDA-Public Use
  Company Number: US-ACTELION-A-US2015-114353

PATIENT
  Age: 75 Year
  Sex: Female

DRUGS (8)
  1. TRACLEER [Suspect]
     Active Substance: BOSENTAN
     Indication: PULMONARY ARTERIAL HYPERTENSION
     Dosage: 125 MG, QD
     Route: 048
     Dates: start: 20120206
  2. COUMADIN [Concomitant]
     Active Substance: WARFARIN SODIUM
     Dosage: 5 MG, QD
  3. SYNTHROID [Concomitant]
     Active Substance: LEVOTHYROXINE SODIUM
     Dosage: 75 MG, QD
  4. ALDACTONE [Concomitant]
     Active Substance: SPIRONOLACTONE
     Dosage: 25 MG, QD
  5. VENTAVIS [Suspect]
     Active Substance: ILOPROST
     Indication: PULMONARY ARTERIAL HYPERTENSION
     Dosage: 5 MCG, 6X/DAY
     Route: 055
     Dates: start: 20100917
  6. SILDENAFIL. [Concomitant]
     Active Substance: SILDENAFIL
  7. BUMEX [Concomitant]
     Active Substance: BUMETANIDE
     Dosage: 1 MG, BID
  8. POTASSIUM [Concomitant]
     Active Substance: POTASSIUM
     Dosage: 20 MG, QD

REACTIONS (9)
  - Atrial fibrillation [Unknown]
  - Pulmonary hypertension [Unknown]
  - Heart rate increased [Recovering/Resolving]
  - Coronary artery insufficiency [Unknown]
  - Dyspnoea [Unknown]
  - Fatigue [Recovering/Resolving]
  - Palpitations [Recovering/Resolving]
  - Atrial flutter [Unknown]
  - Supraventricular tachycardia [Unknown]
